FAERS Safety Report 15240347 (Version 1)
Quarter: 2018Q3

REPORT INFORMATION
  Report Type: Spontaneous
  Country: GB (occurrence: GB)
  Receive Date: 20180804
  Receipt Date: 20180804
  Transmission Date: 20181010
  Serious: Yes (Other)
  Sender: FDA-Public Use
  Company Number: GB-SUN PHARMACEUTICAL INDUSTRIES LTD-2018R1-180105

PATIENT
  Age: 26 Year
  Sex: Male

DRUGS (2)
  1. LEVETIRACETAM. [Suspect]
     Active Substance: LEVETIRACETAM
     Indication: PARTIAL SEIZURES
     Dosage: 2000 MG, BID
     Route: 065
  2. TOPIRAMATE. [Suspect]
     Active Substance: TOPIRAMATE
     Indication: PARTIAL SEIZURES
     Dosage: 200 MG, BID
     Route: 048

REACTIONS (2)
  - Partial seizures [Recovered/Resolved]
  - Drug ineffective [Unknown]
